FAERS Safety Report 7550651-0 (Version None)
Quarter: 2011Q2

REPORT INFORMATION
  Report Type: 
  Country: None (occurrence: None)
  Receive Date: 20110616
  Receipt Date: 20110608
  Transmission Date: 20111010
  Serious: Yes (Death)
  Sender: FDA-Public Use
  Company Number: US-CELGENEUS-163-21880-11061412

PATIENT
  Sex: Female

DRUGS (12)
  1. REVLIMID [Suspect]
     Indication: MULTIPLE MYELOMA
     Dosage: 15 MILLIGRAM
     Route: 048
     Dates: start: 20101210
  2. METOPROLOL [Concomitant]
     Dosage: 25 MILLIGRAM
     Route: 048
  3. CALCIUM +D [Concomitant]
     Route: 048
  4. DEXAMETHASONE [Concomitant]
     Dosage: .25 MILLIGRAM
     Route: 048
  5. REVLIMID [Suspect]
     Dosage: 25 MILLIGRAM
     Route: 048
     Dates: start: 20110101, end: 20110101
  6. CELEBREX [Concomitant]
     Dosage: 100 MILLIGRAM
     Route: 048
  7. REVLIMID [Suspect]
     Dosage: 15 MILLIGRAM
     Route: 048
     Dates: start: 20110301, end: 20110101
  8. COUMADIN [Concomitant]
     Dosage: 4 MILLIGRAM
     Route: 048
  9. OXYCONTIN [Concomitant]
     Dosage: 10 MILLIGRAM
     Route: 048
  10. PERCOCET [Concomitant]
     Dosage: 10/650MG
     Route: 048
  11. ACTONEL [Concomitant]
     Dosage: 30 MILLIGRAM
     Route: 048
  12. SYNTHROID [Concomitant]
     Dosage: 100 MICROGRAM
     Route: 048

REACTIONS (1)
  - DEATH [None]
